FAERS Safety Report 4879138-0 (Version None)
Quarter: 2006Q1

REPORT INFORMATION
  Report Type: 
  Country: None (occurrence: None)
  Receive Date: 20060112
  Receipt Date: 20030826
  Transmission Date: 20060701
  Serious: Yes (Hospitalization)
  Sender: FDA-Public Use
  Company Number: AT-ROCHE-345426

PATIENT
  Age: 54 Year
  Sex: Male

DRUGS (9)
  1. DACLIZUMAB [Suspect]
     Route: 042
     Dates: start: 20030510, end: 20030510
  2. DACLIZUMAB [Suspect]
     Dosage: FOR FOUR DOSES
     Route: 042
     Dates: start: 20030524, end: 20030704
  3. MYCOPHENOLATE MOFETIL [Suspect]
     Route: 048
     Dates: start: 20030510, end: 20030720
  4. MYCOPHENOLATE MOFETIL [Suspect]
     Route: 048
     Dates: start: 20030722
  5. CYCLOSPORINE [Suspect]
     Route: 048
     Dates: start: 20030510, end: 20030720
  6. CYCLOSPORINE [Suspect]
     Route: 048
     Dates: start: 20030721
  7. PREDNISOLONE [Suspect]
     Route: 048
     Dates: start: 20030715
  8. PLENDIL [Concomitant]
     Route: 048
     Dates: start: 20030715
  9. SELOKEN [Concomitant]
     Route: 048
     Dates: start: 20030715

REACTIONS (2)
  - NEUTROPENIA [None]
  - PYREXIA [None]
